FAERS Safety Report 5519917-X (Version None)
Quarter: 2007Q4

REPORT INFORMATION
  Report Type: 
  Country: None (occurrence: None)
  Receive Date: 20071116
  Receipt Date: 20071107
  Transmission Date: 20080405
  Serious: Yes (Life-Threatening, Other)
  Sender: FDA-Public Use
  Company Number: US-RANBAXY-2007US-11369

PATIENT

DRUGS (2)
  1. ISOPTIN SR [Suspect]
     Indication: TACHYCARDIA PAROXYSMAL
     Dosage: 80 MG, QD
     Route: 048
     Dates: start: 20070601, end: 20070918
  2. ALLOPURINOL [Suspect]
     Indication: HYPERURICAEMIA
     Dosage: 300 MG, QD
     Route: 048
     Dates: start: 20070501, end: 20070918

REACTIONS (1)
  - DRUG RASH WITH EOSINOPHILIA AND SYSTEMIC SYMPTOMS [None]
